FAERS Safety Report 13403631 (Version 4)
Quarter: 2017Q2

REPORT INFORMATION
  Report Type: Report from Study
  Country: LV (occurrence: LV)
  Receive Date: 20170405
  Receipt Date: 20170517
  Transmission Date: 20170830
  Serious: Yes (Other)
  Sender: FDA-Public Use
  Company Number: PHHO2017LV005772

PATIENT
  Age: 42 Year
  Sex: Female
  Weight: 87 kg

DRUGS (6)
  1. ETORICOXIB [Concomitant]
     Active Substance: ETORICOXIB
     Indication: PSORIATIC ARTHROPATHY
     Dosage: 90 MG, QD
     Route: 048
     Dates: start: 20160901
  2. ACECLOFENAC [Concomitant]
     Active Substance: ACECLOFENAC
     Indication: PSORIATIC ARTHROPATHY
     Dosage: 10 MG, BID
     Route: 048
     Dates: start: 2013
  3. ADALIMUMAB [Suspect]
     Active Substance: ADALIMUMAB
     Indication: PSORIATIC ARTHROPATHY
     Dosage: 40 MG, QW2
     Route: 065
     Dates: start: 20150422, end: 201506
  4. ETANERCEPT [Suspect]
     Active Substance: ETANERCEPT
     Indication: PSORIATIC ARTHROPATHY
     Dosage: 50 MG, QW
     Route: 065
     Dates: start: 201506
  5. AIN457 [Suspect]
     Active Substance: SECUKINUMAB
     Indication: PSORIATIC ARTHROPATHY
     Dosage: 150 MG, UNK
     Route: 058
     Dates: start: 20160511, end: 20170216
  6. INFLIXIMAB [Suspect]
     Active Substance: INFLIXIMAB
     Indication: PSORIATIC ARTHROPATHY
     Dosage: 50 MG, UNK
     Route: 042
     Dates: start: 201509

REACTIONS (1)
  - Papillary thyroid cancer [Recovering/Resolving]

NARRATIVE: CASE EVENT DATE: 20170309
